FAERS Safety Report 6491983-7 (Version None)
Quarter: 2009Q4

REPORT INFORMATION
  Report Type: 
  Country: None (occurrence: None)
  Receive Date: 20091125
  Receipt Date: 20091007
  Transmission Date: 20100525
  Serious: Yes (Other)
  Sender: FDA-Public Use
  Company Number: 2009BH014489

PATIENT
  Age: 53 Year
  Sex: Male

DRUGS (2)
  1. DIANEAL [Suspect]
     Indication: PERITONEAL DIALYSIS
     Dosage: 11 L ; EVERY DAY ; IP
     Route: 033
     Dates: start: 20090510
  2. EXTRANEAL [Suspect]
     Indication: PERITONEAL DIALYSIS
     Dosage: 2 L ; EVERY DAY ; IP
     Route: 033
     Dates: start: 20090510

REACTIONS (3)
  - BLOODY PERITONEAL EFFLUENT [None]
  - FLUID OVERLOAD [None]
  - MEDICAL DEVICE COMPLICATION [None]
